FAERS Safety Report 5166006-2 (Version None)
Quarter: 2006Q4

REPORT INFORMATION
  Report Type: 
  Country: None (occurrence: None)
  Receive Date: 20061128
  Receipt Date: 20061116
  Transmission Date: 20070319
  Serious: Yes (Hospitalization)
  Sender: FDA-Public Use
  Company Number: AZAUS200600430

PATIENT
  Age: 47 Year
  Sex: Female
  Weight: 52.1637 kg

DRUGS (6)
  1. VIDAZA [Suspect]
     Indication: MYELODYSPLASTIC SYNDROME
     Dosage: 56 MG/M2 (88 MG, DAILY), SUBCUTANEOUS
     Route: 058
     Dates: start: 20061106, end: 20061108
  2. ZOLOFT [Suspect]
     Dates: end: 20061101
  3. QUINAPRIL/HYDROCHLOROTHIAZIDE (GEZOR) [Concomitant]
  4. PRAVASTATIN [Concomitant]
  5. NISOLDIPINE               (NISOLDIPINE) [Concomitant]
  6. LORATADINE [Concomitant]

REACTIONS (1)
  - PANCREATITIS [None]
